FAERS Safety Report 7745067-8 (Version None)
Quarter: 2011Q3

REPORT INFORMATION
  Report Type: 
  Country: None (occurrence: None)
  Receive Date: 20110913
  Receipt Date: 20110902
  Transmission Date: 20111222
  Serious: No
  Sender: FDA-Public Use
  Company Number: US-BIOGENIDEC-2011BI034156

PATIENT
  Age: 35 Year
  Sex: Female

DRUGS (4)
  1. AVONEX [Concomitant]
     Route: 030
     Dates: start: 20070202, end: 20070531
  2. AVONEX [Concomitant]
     Indication: MULTIPLE SCLEROSIS
     Route: 030
     Dates: start: 20100719
  3. AVONEX [Concomitant]
     Route: 030
     Dates: start: 20030404
  4. TYSABRI [Suspect]
     Indication: MULTIPLE SCLEROSIS
     Route: 042
     Dates: start: 20110701

REACTIONS (1)
  - SMEAR CERVIX ABNORMAL [None]
